FAERS Safety Report 24907628 (Version 2)
Quarter: 2025Q2

REPORT INFORMATION
  Report Type: Spontaneous
  Country: JP (occurrence: JP)
  Receive Date: 20250131
  Receipt Date: 20250625
  Transmission Date: 20250716
  Serious: Yes (Hospitalization)
  Sender: AMGEN
  Company Number: JP-AMGEN-JPNSP2024257838

PATIENT

DRUGS (1)
  1. TAVNEOS [Suspect]
     Active Substance: AVACOPAN
     Indication: Anti-neutrophil cytoplasmic antibody positive vasculitis
     Dosage: 60 MILLIGRAM, QD
     Route: 048
     Dates: start: 202411

REACTIONS (5)
  - Fracture [Unknown]
  - Blood potassium increased [Unknown]
  - Glomerular filtration rate increased [Unknown]
  - Blood creatine phosphokinase increased [Unknown]
  - Blood creatinine increased [Unknown]
